FAERS Safety Report 7293083-5 (Version None)
Quarter: 2011Q1

REPORT INFORMATION
  Report Type: 
  Country: None (occurrence: None)
  Receive Date: 20110215
  Receipt Date: 20110209
  Transmission Date: 20110831
  Serious: Yes (Death)
  Sender: FDA-Public Use
  Company Number: US-JNJFOC-20071001794

PATIENT
  Age: 2 Month
  Sex: Female

DRUGS (4)
  1. PSEUDOEPHEDRINE HCL [Suspect]
     Indication: NASOPHARYNGITIS
     Dosage: UNKNOWN
  2. BROMPHENIRAMINE [Suspect]
     Indication: NASOPHARYNGITIS
     Dosage: UNKNOWN
  3. DEXTROMETHORPHAN HYDROBROMIDE [Suspect]
     Indication: NASOPHARYNGITIS
     Dosage: UNKNOWN
  4. PSEUDOEPHEDRINE HCL [Suspect]

REACTIONS (3)
  - COMA [None]
  - PULMONARY OEDEMA [None]
  - TOXICITY TO VARIOUS AGENTS [None]
